FAERS Safety Report 7498708-7 (Version None)
Quarter: 2011Q2

REPORT INFORMATION
  Report Type: 
  Country: None (occurrence: None)
  Receive Date: 20110524
  Receipt Date: 20110510
  Transmission Date: 20111010
  Serious: Yes (Hospitalization)
  Sender: FDA-Public Use
  Company Number: ES-MYLANLABS-2011S1009752

PATIENT
  Age: 41 Year
  Sex: Male

DRUGS (4)
  1. METHOTREXATE [Suspect]
     Route: 058
  2. NAPROXEN [Concomitant]
     Indication: ARTHRITIS
     Route: 065
  3. METHOTREXATE [Suspect]
     Indication: ARTHRITIS
     Route: 058
  4. PREDNISONE [Concomitant]
     Indication: ARTHRITIS
     Dosage: ATTEMPTS TO DECREASE BELOW 10 MG/DAY RESULTED IN ARTHRITIS OUTBREAKS
     Route: 065

REACTIONS (1)
  - HEPATITIS B [None]
